FAERS Safety Report 9059961 (Version 1)
Quarter: 2013Q1

REPORT INFORMATION
  Report Type: Spontaneous
  Country: US (occurrence: US)
  Receive Date: 20130212
  Receipt Date: 20130212
  Transmission Date: 20140127
  Serious: Yes (Other)
  Sender: FDA-Public Use
  Company Number: US-BAYER-2013-016412

PATIENT
  Age: 34 Year
  Sex: Female

DRUGS (6)
  1. YASMIN [Suspect]
  2. PREVACID [Concomitant]
  3. ZYRTEK [Concomitant]
  4. ACETAMINOPHEN W/CODEINE [Concomitant]
  5. NAPROSYN [Concomitant]
  6. LEVOTHROID [Concomitant]

REACTIONS (2)
  - Deep vein thrombosis [None]
  - Thrombophlebitis superficial [None]
